FAERS Safety Report 14188120 (Version 1)
Quarter: 2017Q4

REPORT INFORMATION
  Report Type: Spontaneous
  Country: US (occurrence: US)
  Receive Date: 20171114
  Receipt Date: 20171114
  Transmission Date: 20180321
  Serious: Yes (Disabling, Other)
  Sender: FDA-Public Use
  Company Number: US-SA-2017SA218921

PATIENT
  Age: 44 Year
  Sex: Female

DRUGS (2)
  1. AMPYRA [Suspect]
     Active Substance: DALFAMPRIDINE
     Route: 065
  2. AUBAGIO [Suspect]
     Active Substance: TERIFLUNOMIDE
     Indication: MULTIPLE SCLEROSIS
     Route: 048
     Dates: start: 20170714, end: 20171030

REACTIONS (5)
  - Seizure [Unknown]
  - Neoplasm progression [Unknown]
  - Gait disturbance [Unknown]
  - Wheelchair user [Unknown]
  - Gait disturbance [Unknown]

NARRATIVE: CASE EVENT DATE: 20171030
